FAERS Safety Report 4998142-5 (Version None)
Quarter: 2006Q2

REPORT INFORMATION
  Report Type: 
  Country: None (occurrence: None)
  Receive Date: 20060510
  Receipt Date: 20050112
  Transmission Date: 20061013
  Serious: Yes (Hospitalization, Other)
  Sender: FDA-Public Use
  Company Number: US-MERCK-0501USA01251

PATIENT
  Age: 80 Year
  Sex: Male
  Weight: 77 kg

DRUGS (1)
  1. VIOXX [Suspect]
     Indication: OSTEOPENIA
     Route: 048
     Dates: start: 20010101, end: 20040901

REACTIONS (5)
  - ARTHRALGIA [None]
  - CARDIOVASCULAR DISORDER [None]
  - CEREBROVASCULAR ACCIDENT [None]
  - CHEST PAIN [None]
  - MYOCARDIAL INFARCTION [None]
